FAERS Safety Report 18960394 (Version 1)
Quarter: 2021Q1

REPORT INFORMATION
  Report Type: Spontaneous
  Country: US (occurrence: US)
  Receive Date: 20210303
  Receipt Date: 20210303
  Transmission Date: 20210420
  Serious: Yes (Other)
  Sender: FDA-Public Use
  Company Number: US-HIKMA PHARMACEUTICALS USA INC.-US-H14001-21-00916

PATIENT
  Age: 79 Year
  Sex: Female

DRUGS (4)
  1. CYCLOPHOSPHAMIDE. [Suspect]
     Active Substance: CYCLOPHOSPHAMIDE
     Indication: CHEMOTHERAPY
     Dosage: UNKNOWN
     Route: 065
  2. DOXIFLURIDINE [Suspect]
     Active Substance: DOXIFLURIDINE
     Indication: CHEMOTHERAPY
     Dosage: UNKNOWN
     Route: 065
  3. ADRIAMYCIN [Suspect]
     Active Substance: DOXORUBICIN HYDROCHLORIDE
     Indication: CHEMOTHERAPY
     Dosage: UNKNOWN
     Route: 065
  4. PACLITAXEL. [Suspect]
     Active Substance: PACLITAXEL
     Indication: CHEMOTHERAPY
     Dosage: UNKNOWN
     Route: 065

REACTIONS (3)
  - Gastrointestinal necrosis [Unknown]
  - Neutropenic colitis [Unknown]
  - Intestinal perforation [Unknown]
